FAERS Safety Report 8802753 (Version 4)
Quarter: 2013Q1

REPORT INFORMATION
  Report Type: Spontaneous
  Country: US (occurrence: US)
  Receive Date: 20120921
  Receipt Date: 20130221
  Transmission Date: 20140127
  Serious: Yes (Hospitalization, Disabling, Other)
  Sender: FDA-Public Use
  Company Number: US-009507513-1202USA04368

PATIENT
  Sex: Female
  Weight: 53.97 kg

DRUGS (5)
  1. FOSAMAX [Suspect]
     Indication: OSTEOPOROSIS
     Dosage: 70 MG, UNK
     Route: 048
     Dates: start: 2000, end: 201002
  2. FOSAMAX [Suspect]
     Indication: OSTEOPENIA
     Dosage: UNK
     Route: 048
     Dates: end: 20081229
  3. VITAMINS (UNSPECIFIED) [Concomitant]
     Dosage: UNK
     Dates: start: 1997
  4. CITRACAL [Concomitant]
  5. OMEGA-3 MARINE TRIGLYCERIDES [Concomitant]

REACTIONS (21)
  - Femur fracture [Unknown]
  - Open reduction of fracture [Unknown]
  - Hepatic enzyme increased [Unknown]
  - Fall [Unknown]
  - Autoimmune hepatitis [Unknown]
  - Leukocytosis [Recovered/Resolved]
  - Herpes zoster [Unknown]
  - Blood cholesterol increased [Unknown]
  - Hypokalaemia [Unknown]
  - Pseudomembranous colitis [Unknown]
  - Clostridium difficile colitis [Unknown]
  - Adverse drug reaction [Unknown]
  - Hypoalbuminaemia [Unknown]
  - Pleural effusion [Unknown]
  - Hypotension [Unknown]
  - Diarrhoea [Unknown]
  - Abdominal discomfort [Unknown]
  - Low turnover osteopathy [Unknown]
  - Arthritis [Unknown]
  - Malnutrition [Unknown]
  - Iritis [Unknown]
